FAERS Safety Report 22260897 (Version 1)
Quarter: 2023Q2

REPORT INFORMATION
  Report Type: Spontaneous
  Country: US (occurrence: None)
  Receive Date: 20230425
  Receipt Date: 20230425
  Transmission Date: 20230722
  Serious: Yes (Hospitalization)
  Sender: FDA-Public Use
  Company Number: None

PATIENT
  Age: 75 Year
  Sex: Female
  Weight: 72.57 kg

DRUGS (8)
  1. LEVOFLOXACIN [Suspect]
     Active Substance: LEVOFLOXACIN
     Indication: Urinary tract infection
     Route: 048
     Dates: start: 20220728, end: 20220802
  2. SPIRONOLACTONE [Concomitant]
     Active Substance: SPIRONOLACTONE
  3. LEVOTHYROXINE [Concomitant]
     Active Substance: LEVOTHYROXINE
     Dosage: FREQUENCY : DAILY;?
  4. GABAPENTIN [Concomitant]
     Active Substance: GABAPENTIN
  5. SIMVASTATIN [Suspect]
     Active Substance: SIMVASTATIN
  6. PLAVIX [Concomitant]
     Active Substance: CLOPIDOGREL BISULFATE
  7. ZYIAL [Concomitant]
  8. TRAZODONE [Concomitant]
     Active Substance: TRAZODONE HYDROCHLORIDE

REACTIONS (5)
  - Peripheral swelling [None]
  - Tendon rupture [None]
  - Procedural pain [None]
  - Hypoaesthesia [None]
  - Skin tightness [None]

NARRATIVE: CASE EVENT DATE: 20220803
